FAERS Safety Report 19856059 (Version 1)
Quarter: 2021Q3

REPORT INFORMATION
  Report Type: Spontaneous
  Country: US (occurrence: US)
  Receive Date: 20210920
  Receipt Date: 20210920
  Transmission Date: 20211014
  Serious: Yes (Disabling, Other)
  Sender: FDA-Public Use
  Company Number: None

PATIENT
  Age: 46 Year
  Sex: Male
  Weight: 99 kg

DRUGS (1)
  1. OMNIPAQUE [Suspect]
     Active Substance: IOHEXOL
     Indication: X-RAY WITH CONTRAST
     Dosage: ?          QUANTITY:1 INJECTION(S);?
     Route: 042

REACTIONS (7)
  - Confusional state [None]
  - Memory impairment [None]
  - Penis disorder [None]
  - Dizziness [None]
  - Headache [None]
  - Nerve injury [None]
  - Feeling cold [None]

NARRATIVE: CASE EVENT DATE: 20210517
